FAERS Safety Report 9527172 (Version 2)
Quarter: 2013Q3

REPORT INFORMATION
  Report Type: Report from Study
  Country: US (occurrence: US)
  Receive Date: 20130916
  Receipt Date: 20130924
  Transmission Date: 20140515
  Serious: Yes (Death)
  Sender: FDA-Public Use
  Company Number: US-ROCHE-1276712

PATIENT
  Sex: Female

DRUGS (1)
  1. XELODA [Suspect]
     Indication: MALIGNANT NEOPLASM OF UNKNOWN PRIMARY SITE
     Route: 065

REACTIONS (1)
  - Adenocarcinoma [Fatal]
